FAERS Safety Report 8924291 (Version 1)
Quarter: 2012Q4

REPORT INFORMATION
  Report Type: Spontaneous
  Country: GB (occurrence: None)
  Receive Date: 20121116
  Receipt Date: 20121116
  Transmission Date: 20130627
  Serious: Yes (Hospitalization)
  Sender: FDA-Public Use
  Company Number: 141599

PATIENT
  Age: 74 Year
  Sex: Female

DRUGS (3)
  1. METHOTREXATE [Suspect]
  2. IMMUNOSUPPRESSANT [Concomitant]
  3. CORTICOSTEROID THERAPY [Concomitant]

REACTIONS (4)
  - Gallbladder perforation [None]
  - Haemobilia [None]
  - Hypovolaemic shock [None]
  - Cholecystitis acute [None]
